FAERS Safety Report 8900098 (Version 1)
Quarter: 2012Q4

REPORT INFORMATION
  Report Type: 
  Country: AR (occurrence: AR)
  Receive Date: 20121109
  Receipt Date: 20121109
  Transmission Date: 20130627
  Serious: Yes (Hospitalization)
  Sender: FDA-Public Use
  Company Number: AR-AMGEN-ARGSP2012069902

PATIENT
  Age: 67 Year
  Sex: Female

DRUGS (4)
  1. ENBREL [Suspect]
     Indication: RHEUMATOID ARTHRITIS
     Dosage: 50.0 mg, weekly
     Route: 058
     Dates: start: 20081119
  2. TENSIUM                            /00017001/ [Concomitant]
     Indication: ANXIETY
     Dosage: 0.5 mg, 1x/day
  3. LEVOTHYROXINE [Concomitant]
     Indication: THYROID THERAPY
     Dosage: 75 mg, 1x/day
  4. COZAAR [Concomitant]
     Indication: HYPERTENSION
     Dosage: 50 mg, 1x/day

REACTIONS (3)
  - Lung infection [Not Recovered/Not Resolved]
  - Vomiting [Not Recovered/Not Resolved]
  - Cough [Recovering/Resolving]
